FAERS Safety Report 19417802 (Version 2)
Quarter: 2021Q2

REPORT INFORMATION
  Report Type: Other
  Country: US (occurrence: US)
  Receive Date: 20210615
  Receipt Date: 20210629
  Transmission Date: 20210717
  Serious: Yes (Other)
  Sender: FDA-Public Use
  Company Number: US-ROCHE-2846459

PATIENT
  Sex: Male

DRUGS (1)
  1. OCREVUS [Suspect]
     Active Substance: OCRELIZUMAB
     Indication: AUTOIMMUNE DISORDER
     Dosage: INFUSE 600MG INTRAVENOUSLY EVERY 6 MONTH(S)?DATE OF TREATMENT 22/NOV/2019, 02/DEC/2020,04/JUN/2020,
     Route: 042
     Dates: start: 20191113

REACTIONS (1)
  - Immobile [Unknown]
